FAERS Safety Report 6941983-5 (Version None)
Quarter: 2010Q3

REPORT INFORMATION
  Report Type: 
  Country: None (occurrence: None)
  Receive Date: 20100826
  Receipt Date: 20100813
  Transmission Date: 20110219
  Serious: Yes (Other)
  Sender: FDA-Public Use
  Company Number: PHFR2010GB01509

PATIENT
  Sex: Male

DRUGS (7)
  1. CLOZARIL [Suspect]
     Indication: SCHIZOPHRENIA
     Dosage: UNK
     Route: 048
     Dates: start: 20070719
  2. CLOZARIL [Suspect]
     Dosage: 400MG DAILY
     Route: 048
     Dates: start: 20090915
  3. CLOZARIL [Suspect]
     Dosage: 300MG DAILY
     Route: 048
     Dates: start: 20090901
  4. CLOZARIL [Suspect]
     Dosage: 200MG DAILY
     Route: 048
  5. AMISULPRIDE [Suspect]
     Dosage: 600MG DAILY
     Route: 048
     Dates: start: 20080301
  6. HYOSCINE HBR HYT [Concomitant]
     Dosage: 900MCG
     Route: 048
     Dates: start: 20070901
  7. PROPRANOLOL [Concomitant]
     Dosage: 160MG DAILY
     Route: 048
     Dates: start: 20010101

REACTIONS (1)
  - ELECTROCARDIOGRAM QT PROLONGED [None]
